FAERS Safety Report 22775454 (Version 4)
Quarter: 2024Q1

REPORT INFORMATION
  Report Type: Report from Study
  Country: US (occurrence: US)
  Receive Date: 20230802
  Receipt Date: 20240126
  Transmission Date: 20240410
  Serious: Yes (Hospitalization, Other)
  Sender: FDA-Public Use
  Company Number: US-ABBVIE-5324453

PATIENT
  Sex: Male

DRUGS (2)
  1. IMBRUVICA [Suspect]
     Active Substance: IBRUTINIB
     Indication: B-cell small lymphocytic lymphoma
     Route: 048
     Dates: start: 20230301
  2. IMBRUVICA [Suspect]
     Active Substance: IBRUTINIB
     Indication: B-cell small lymphocytic lymphoma
     Route: 048
     Dates: start: 202208

REACTIONS (18)
  - Road traffic accident [Unknown]
  - Eye infection [Unknown]
  - Gastrooesophageal reflux disease [Not Recovered/Not Resolved]
  - Weight decreased [Unknown]
  - Arthritis [Unknown]
  - Flatulence [Not Recovered/Not Resolved]
  - Decreased appetite [Unknown]
  - Diarrhoea [Unknown]
  - Blood pressure abnormal [Recovering/Resolving]
  - Nasopharyngitis [Unknown]
  - Mobility decreased [Unknown]
  - Abdominal distension [Unknown]
  - Skin laceration [Unknown]
  - Neoplasm malignant [Unknown]
  - Rib fracture [Unknown]
  - Injury [Unknown]
  - Infection [Unknown]
  - Sternal fracture [Unknown]

NARRATIVE: CASE EVENT DATE: 20230101
